FAERS Safety Report 21019140 (Version 1)
Quarter: 2022Q2

REPORT INFORMATION
  Report Type: Report from Study
  Country: US (occurrence: US)
  Receive Date: 20220628
  Receipt Date: 20220628
  Transmission Date: 20220720
  Serious: Yes (Hospitalization)
  Sender: FDA-Public Use
  Company Number: US-JAZZ-2022-US-008227

PATIENT
  Sex: Female

DRUGS (5)
  1. XYREM [Suspect]
     Active Substance: SODIUM OXYBATE
     Indication: Narcolepsy
     Dosage: 2.25G BID FOR 14 DAYS, 3G BID FOR 14 DAYS, 3.75G BID FOR 14 DAYS, 4.5G BID
     Route: 048
     Dates: start: 201705, end: 201709
  2. XYREM [Suspect]
     Active Substance: SODIUM OXYBATE
     Indication: Cataplexy
     Dosage: DOSE ADJUSTMENT
     Route: 048
     Dates: start: 201709, end: 202202
  3. XYREM [Suspect]
     Active Substance: SODIUM OXYBATE
     Indication: Somnolence
     Dosage: 3.75G BID FOR 7 DAYS, 4.5G BID
     Route: 048
     Dates: start: 202203
  4. WELLBUTRIN XL [Concomitant]
     Active Substance: BUPROPION HYDROCHLORIDE
     Dosage: 0000
     Dates: start: 20170721
  5. PROVIGIL [Concomitant]
     Active Substance: MODAFINIL
     Dosage: 0000
     Dates: start: 20190905

REACTIONS (1)
  - Norovirus infection [Unknown]
